FAERS Safety Report 9572227 (Version 2)
Quarter: 2013Q4

REPORT INFORMATION
  Report Type: Spontaneous
  Country: US (occurrence: US)
  Receive Date: 20131001
  Receipt Date: 20131115
  Transmission Date: 20140711
  Serious: No
  Sender: FDA-Public Use
  Company Number: US-BIOGENIDEC-2013BI068261

PATIENT
  Age: 40 Year
  Sex: Female
  Weight: 66 kg

DRUGS (8)
  1. TECFIDERA [Suspect]
     Indication: PRODUCT USED FOR UNKNOWN INDICATION
     Route: 048
  2. TUMS [Concomitant]
  3. ZANTAC [Concomitant]
  4. MYLANTA [Concomitant]
  5. EFFEXOR [Concomitant]
  6. TOPAMAX [Concomitant]
  7. NAPROXEN [Concomitant]
  8. ADVIL [Concomitant]

REACTIONS (10)
  - Muscle spasms [Recovered/Resolved]
  - Abdominal pain [Recovered/Resolved]
  - Nausea [Recovered/Resolved]
  - Diarrhoea [Recovered/Resolved]
  - Abdominal pain upper [Recovered/Resolved]
  - Nightmare [Unknown]
  - Pruritus [Recovered/Resolved]
  - Flushing [Recovered/Resolved]
  - Dyspepsia [Unknown]
  - Erythema [Unknown]
